FAERS Safety Report 19225863 (Version 1)
Quarter: 2021Q2

REPORT INFORMATION
  Report Type: Spontaneous
  Country: US (occurrence: US)
  Receive Date: 20210506
  Receipt Date: 20210506
  Transmission Date: 20210717
  Serious: No
  Sender: FDA-Public Use
  Company Number: US-PFIZER INC-2021476456

PATIENT
  Age: 53 Year
  Sex: Female

DRUGS (1)
  1. XELJANZ [Suspect]
     Active Substance: TOFACITINIB CITRATE
     Indication: COLITIS ULCERATIVE
     Dosage: 10 MG, 2X/DAY
     Dates: start: 20210420

REACTIONS (8)
  - Condition aggravated [Unknown]
  - Pyrexia [Unknown]
  - Rash erythematous [Unknown]
  - Myalgia [Unknown]
  - Vomiting [Unknown]
  - Chills [Unknown]
  - Asthenia [Unknown]
  - Headache [Unknown]
